FAERS Safety Report 21975318 (Version 1)
Quarter: 2023Q1

REPORT INFORMATION
  Report Type: Spontaneous
  Country: US (occurrence: US)
  Receive Date: 20230210
  Receipt Date: 20230210
  Transmission Date: 20230418
  Serious: No
  Sender: FDA-Public Use
  Company Number: US-TOLMAR, INC.-23US038658

PATIENT
  Sex: Male

DRUGS (2)
  1. CALCIPOTRIENE [Suspect]
     Active Substance: CALCIPOTRIENE
     Indication: Skin cancer
     Dosage: 0.005 % PERCENT
     Route: 003
  2. FLUOROURACIL [Concomitant]
     Active Substance: FLUOROURACIL
     Indication: Skin cancer

REACTIONS (2)
  - Rash [Recovering/Resolving]
  - Expired product administered [Unknown]
